FAERS Safety Report 24408344 (Version 1)
Quarter: 2024Q4

REPORT INFORMATION
  Report Type: Spontaneous
  Country: JP (occurrence: JP)
  Receive Date: 20241007
  Receipt Date: 20241007
  Transmission Date: 20250114
  Serious: Yes (Other)
  Sender: GLAXOSMITHKLINE
  Company Number: JP-GLAXOSMITHKLINE-JP2024JPN120619

PATIENT

DRUGS (2)
  1. VALTREX [Suspect]
     Active Substance: VALACYCLOVIR HYDROCHLORIDE
     Indication: Herpes zoster
     Dosage: UNK
  2. ZOVIRAX [Suspect]
     Active Substance: ACYCLOVIR
     Dosage: UNK

REACTIONS (7)
  - Toxic encephalopathy [Unknown]
  - Shock haemorrhagic [Unknown]
  - Intentional self-injury [Unknown]
  - Altered state of consciousness [Unknown]
  - Neurosis [Recovered/Resolved]
  - Colon injury [Unknown]
  - Overdose [Unknown]
